FAERS Safety Report 9228123 (Version 3)
Quarter: 2013Q4

REPORT INFORMATION
  Report Type: Spontaneous
  Country: US (occurrence: US)
  Receive Date: 20130412
  Receipt Date: 20131206
  Transmission Date: 20140711
  Serious: Yes (Hospitalization, Other)
  Sender: FDA-Public Use
  Company Number: US-BAYER-2013-045351

PATIENT
  Age: 39 Year
  Sex: Female
  Weight: 60.77 kg

DRUGS (4)
  1. YASMIN [Suspect]
     Indication: ACNE
     Dosage: UNK
     Dates: start: 2006, end: 201011
  2. YASMIN [Suspect]
     Indication: PREMENSTRUAL SYNDROME
  3. CLARITIN [Concomitant]
  4. DAILY VITAMINS [Concomitant]

REACTIONS (15)
  - Thrombosis [None]
  - Deep vein thrombosis [Recovered/Resolved]
  - Pain in extremity [Recovered/Resolved]
  - Abdominal pain [None]
  - Injury [Recovered/Resolved]
  - Emotional distress [None]
  - General physical health deterioration [Recovered/Resolved]
  - Anxiety [None]
  - Pain [None]
  - Asthenia [Recovered/Resolved]
  - Chest pain [None]
  - Dyspnoea [None]
  - Cholecystectomy [None]
  - Pulmonary embolism [None]
  - Painful respiration [None]
